FAERS Safety Report 8166418-9 (Version None)
Quarter: 2012Q1

REPORT INFORMATION
  Report Type: 
  Country: None (occurrence: None)
  Receive Date: 20120227
  Receipt Date: 20110722
  Transmission Date: 20120608
  Serious: No
  Sender: FDA-Public Use
  Company Number: US-MYLANLABS-2011S1015420

PATIENT
  Age: 38 Year
  Sex: Female

DRUGS (4)
  1. AMNESTEEM [Suspect]
     Indication: ACNE
     Route: 048
     Dates: start: 20110501, end: 20110601
  2. AMNESTEEM [Suspect]
     Route: 048
     Dates: start: 20110601, end: 20110719
  3. CLARAVIS [Suspect]
     Indication: ACNE
     Route: 048
     Dates: start: 20110601, end: 20110719
  4. VITAMIN E [Concomitant]
     Indication: DRY SKIN
     Route: 048

REACTIONS (2)
  - HAEMORRHOIDS [None]
  - PRURITUS [None]
